FAERS Safety Report 13867154 (Version 1)
Quarter: 2017Q3

REPORT INFORMATION
  Report Type: Spontaneous
  Country: US (occurrence: None)
  Receive Date: 20170814
  Receipt Date: 20170814
  Transmission Date: 20171127
  Serious: Yes (Hospitalization)
  Sender: FDA-Public Use
  Company Number: None

PATIENT
  Age: 0 Day
  Sex: Female

DRUGS (1)
  1. SUTENT [Suspect]
     Active Substance: SUNITINIB MALATE
     Indication: PRODUCT USED FOR UNKNOWN INDICATION
     Dosage: 37.5 MG ONCE DAILY FOR 14 DAYS ON AND 7 DAYS BY MOUTH
     Route: 048
     Dates: start: 20170726, end: 20170806

REACTIONS (5)
  - Erythema [None]
  - Pyrexia [None]
  - Lip swelling [None]
  - Rash [None]
  - Swelling face [None]
